FAERS Safety Report 9708227 (Version 2)
Quarter: 2013Q4

REPORT INFORMATION
  Report Type: Report from Study
  Country: US (occurrence: US)
  Receive Date: 20131125
  Receipt Date: 20131125
  Transmission Date: 20140711
  Serious: Yes (Other)
  Sender: FDA-Public Use
  Company Number: US-ACTELION-A-NJ2013-89181

PATIENT
  Age: 77 Year
  Sex: Female

DRUGS (2)
  1. TRACLEER [Suspect]
     Indication: PULMONARY ARTERIAL HYPERTENSION
     Dosage: UNK
     Route: 048
  2. COUMADIN [Concomitant]

REACTIONS (11)
  - Cardiac pacemaker insertion [Unknown]
  - Palpitations [Unknown]
  - Eye pruritus [Unknown]
  - Insomnia [Unknown]
  - Decreased appetite [Unknown]
  - Nasal congestion [Unknown]
  - Nausea [Unknown]
  - Fatigue [Unknown]
  - Dyspnoea [Unknown]
  - Local swelling [Unknown]
  - Chest pain [Unknown]
